FAERS Safety Report 5197391-3 (Version None)
Quarter: 2006Q4

REPORT INFORMATION
  Report Type: 
  Country: None (occurrence: None)
  Receive Date: 20060928
  Receipt Date: 20060601
  Transmission Date: 20070319
  Serious: Yes (Other)
  Sender: FDA-Public Use
  Company Number: HQWYE722502JUN06

PATIENT
  Age: 43 Year
  Sex: Male

DRUGS (3)
  1. RAPAMUNE [Suspect]
     Indication: RENAL TRANSPLANT
     Dosage: 2 MG (FREQUENCY UNSPECIFIED), ORAL; SEE IMAGE
     Route: 048
     Dates: start: 20050201
  2. NIFEDIPINE [Concomitant]
  3. FUROSEMIDE [Concomitant]

REACTIONS (6)
  - ARTHRALGIA [None]
  - DEAFNESS [None]
  - FUNGAL INFECTION [None]
  - MYALGIA [None]
  - OEDEMA [None]
  - TINNITUS [None]
